FAERS Safety Report 5023859-6 (Version None)
Quarter: 2006Q2

REPORT INFORMATION
  Report Type: 
  Country: None (occurrence: None)
  Receive Date: 20060606
  Receipt Date: 20060525
  Transmission Date: 20061013
  Serious: Yes (Other)
  Sender: FDA-Public Use
  Company Number: US200602004320

PATIENT
  Sex: Female

DRUGS (1)
  1. EVISTA [Suspect]
     Dosage: 120 MG, DAILY (1/D), ORAL
     Route: 048
     Dates: start: 19950101, end: 19990507

REACTIONS (1)
  - MYELOPROLIFERATIVE DISORDER [None]
